FAERS Safety Report 8185317-X (Version None)
Quarter: 2012Q1

REPORT INFORMATION
  Report Type: 
  Country: None (occurrence: None)
  Receive Date: 20120305
  Receipt Date: 20120228
  Transmission Date: 20120608
  Serious: Yes (Hospitalization)
  Sender: FDA-Public Use
  Company Number: FR-ROCHE-1044399

PATIENT
  Sex: Female

DRUGS (3)
  1. AMOXICILLIN AND CLAVULANATE POTASSIUM [Suspect]
     Indication: INFLUENZA
     Dates: start: 20111205
  2. AVASTIN [Suspect]
     Indication: PRODUCT USED FOR UNKNOWN INDICATION
     Route: 031
  3. ACETAMINOPHEN [Suspect]
     Indication: INFLUENZA
     Dates: start: 20111204, end: 20111209

REACTIONS (5)
  - OEDEMA [None]
  - RASH PUSTULAR [None]
  - PYREXIA [None]
  - ACUTE FEBRILE NEUTROPHILIC DERMATOSIS [None]
  - HALLUCINATION [None]
